FAERS Safety Report 10545352 (Version 1)
Quarter: 2014Q4

REPORT INFORMATION
  Report Type: Spontaneous
  Country: US (occurrence: US)
  Receive Date: 20141027
  Receipt Date: 20141027
  Transmission Date: 20150529
  Serious: No
  Sender: FDA-Public Use
  Company Number: US-ELI_LILLY_AND_COMPANY-US201410004096

PATIENT
  Sex: Female

DRUGS (1)
  1. HUMALOG [Suspect]
     Active Substance: INSULIN LISPRO
     Indication: DIABETES MELLITUS
     Dosage: UNK, PRN

REACTIONS (6)
  - Intentional product misuse [Unknown]
  - Blood glucose decreased [Unknown]
  - Medication error [Unknown]
  - Blood glucose increased [Unknown]
  - Feeling abnormal [Unknown]
  - Incorrect dose administered [Unknown]
